FAERS Safety Report 7688551 (Version 2)
Quarter: 2013Q4

REPORT INFORMATION
  Report Type: Spontaneous
  Country: US (occurrence: None)
  Receive Date: 20090723
  Receipt Date: 20131015
  Transmission Date: 20140711
  Serious: Yes (Hospitalization)
  Sender: FDA-Public Use
  Company Number: 2009S1005576

PATIENT
  Age: 56 Year
  Sex: Female

DRUGS (6)
  1. E-Z-EM PREP LYTE [Suspect]
     Indication: COLONOSCOPY
     Dosage: ORAL
     Route: 048
     Dates: start: 200606, end: 200606
  2. ENTERIC COATED ASPIRIN (ACETYLSALICYLIC ACID) [Concomitant]
  3. EFFEXOR XR (VENLAFAXINE HYDROCHLORIDE) (75 MILLIGRAM, CAPSULE) (VENLAFAXINE HYDROCHLORIDE) [Concomitant]
  4. ZOCOR (SIMVASTATIN) [Concomitant]
  5. PREVACID (LANSOPRAZOLE) [Concomitant]
  6. DARVOCET (PARACETAMOL, DEXTROPROPOXYPHENE HYDROCHLORIDE) [Concomitant]

REACTIONS (1)
  - Pyelonephritis acute [None]
